FAERS Safety Report 11108845 (Version 1)
Quarter: 2015Q2

REPORT INFORMATION
  Report Type: Spontaneous
  Country: US (occurrence: None)
  Receive Date: 20150511
  Receipt Date: 20150511
  Transmission Date: 20150821
  Serious: Yes (Life-Threatening)
  Sender: FDA-Public Use
  Company Number: None

PATIENT
  Age: 71 Year
  Sex: Male
  Weight: 140.62 kg

DRUGS (2)
  1. DOXAZOSIN MESYLATE 4 MG [Suspect]
     Active Substance: DOXAZOSIN MESYLATE
     Indication: PROSTATOMEGALY
     Dosage: TAKEN BY MOUTH
  2. DOXAZOSIN MESYLATE 4 MG [Suspect]
     Active Substance: DOXAZOSIN MESYLATE
     Indication: URINE FLOW DECREASED
     Dosage: TAKEN BY MOUTH

REACTIONS (3)
  - Heart rate increased [None]
  - Lymphocyte morphology abnormal [None]
  - Dyspnoea exertional [None]

NARRATIVE: CASE EVENT DATE: 20150203
